FAERS Safety Report 4700578-4 (Version None)
Quarter: 2005Q2

REPORT INFORMATION
  Report Type: 
  Country: None (occurrence: None)
  Receive Date: 20050627
  Receipt Date: 20050614
  Transmission Date: 20051028
  Serious: Yes (Hospitalization, Other)
  Sender: FDA-Public Use
  Company Number: HQWYE994426MAY05

PATIENT
  Age: 48 Year
  Sex: Male

DRUGS (11)
  1. RAPAMUNE [Suspect]
     Indication: PROPHYLAXIS AGAINST TRANSPLANT REJECTION
     Dosage: 6 MG 1X PER 1 DAY ORAL
     Route: 048
     Dates: start: 20050504
  2. TACROLIMUS (TACROLIMUS) [Concomitant]
  3. ZENAPAX [Concomitant]
  4. PREDNISONE [Concomitant]
  5. ATORVASTATIN CALCIUM [Concomitant]
  6. LOSEC (OMEPRAZOLE) [Concomitant]
  7. RAMIPRIL [Concomitant]
  8. BACTRIM DS [Concomitant]
  9. NYSTATIN [Concomitant]
  10. MAGNESIUM (MAGNESIUM) [Concomitant]
  11. METOPROLOL TARTRATE [Concomitant]

REACTIONS (7)
  - ALANINE AMINOTRANSFERASE INCREASED [None]
  - ANGINA UNSTABLE [None]
  - BLOOD ALKALINE PHOSPHATASE INCREASED [None]
  - BLOOD CALCIUM DECREASED [None]
  - BLOOD CREATININE ABNORMAL [None]
  - BLOOD PHOSPHORUS DECREASED [None]
  - HAEMOGLOBIN DECREASED [None]
